FAERS Safety Report 25362057 (Version 1)
Quarter: 2025Q2

REPORT INFORMATION
  Report Type: Spontaneous
  Country: IR (occurrence: IR)
  Receive Date: 20250527
  Receipt Date: 20250527
  Transmission Date: 20250717
  Serious: Yes (Life-Threatening, Hospitalization, Other)
  Sender: RANBAXY
  Company Number: IR-SUN PHARMACEUTICAL INDUSTRIES LTD-2025R1-508304

PATIENT
  Age: 16 Year
  Sex: Female

DRUGS (1)
  1. NORTRIPTYLINE [Suspect]
     Active Substance: NORTRIPTYLINE
     Indication: Major depression
     Route: 065

REACTIONS (8)
  - Intentional overdose [Unknown]
  - Toxicity to various agents [Unknown]
  - Depressed level of consciousness [Recovering/Resolving]
  - Ventricular tachycardia [Recovering/Resolving]
  - Electrocardiogram QT prolonged [Recovering/Resolving]
  - Electrocardiogram T wave abnormal [Recovering/Resolving]
  - Generalised tonic-clonic seizure [Recovering/Resolving]
  - Encephalopathy [Recovering/Resolving]
